FAERS Safety Report 7904082-1 (Version None)
Quarter: 2011Q4

REPORT INFORMATION
  Report Type: 
  Country: None (occurrence: None)
  Receive Date: 20111109
  Receipt Date: 20111107
  Transmission Date: 20120403
  Serious: Yes (Hospitalization, Other)
  Sender: FDA-Public Use
  Company Number: AU-PFIZER INC-2011271189

PATIENT
  Sex: Female

DRUGS (1)
  1. CYKLOKAPRON [Suspect]
     Indication: MENORRHAGIA
     Dosage: 500 MG, 2X/DAY
     Dates: start: 20111104

REACTIONS (4)
  - HYPERSENSITIVITY [None]
  - DIZZINESS [None]
  - MYOCARDIAL INFARCTION [None]
  - HYPOAESTHESIA [None]
